FAERS Safety Report 8165095-0 (Version None)
Quarter: 2012Q1

REPORT INFORMATION
  Report Type: 
  Country: None (occurrence: None)
  Receive Date: 20120227
  Receipt Date: 20120213
  Transmission Date: 20120608
  Serious: Yes (Other)
  Sender: FDA-Public Use
  Company Number: MY-RANBAXY-2012R3-52757

PATIENT
  Age: 58 Year
  Sex: Male

DRUGS (1)
  1. ATORVASTATIN [Suspect]
     Indication: DYSLIPIDAEMIA
     Dosage: 20 MG, DAILY
     Route: 048

REACTIONS (1)
  - SKIN EXFOLIATION [None]
